FAERS Safety Report 10675810 (Version 1)
Quarter: 2014Q4

REPORT INFORMATION
  Report Type: Spontaneous
  Country: NZ (occurrence: NZ)
  Receive Date: 20141225
  Receipt Date: 20141225
  Transmission Date: 20150529
  Serious: Yes (Hospitalization)
  Sender: FDA-Public Use
  Company Number: NZ-ABBVIE-14K-118-1325155-00

PATIENT
  Age: 40 Year

DRUGS (1)
  1. HUMIRA [Suspect]
     Active Substance: ADALIMUMAB
     Indication: PRODUCT USED FOR UNKNOWN INDICATION
     Route: 065

REACTIONS (3)
  - Still^s disease adult onset [Unknown]
  - Asthenia [Unknown]
  - Hospitalisation [Unknown]

NARRATIVE: CASE EVENT DATE: 201406
